FAERS Safety Report 9783429 (Version 3)
Quarter: 2014Q1

REPORT INFORMATION
  Report Type: Spontaneous
  Country: US (occurrence: None)
  Receive Date: 20131223
  Receipt Date: 20140124
  Transmission Date: 20141002
  Serious: Yes (Other)
  Sender: FDA-Public Use
  Company Number: ADR-2013-02304

PATIENT
  Age: 50 Year
  Sex: Female

DRUGS (3)
  1. LIORESAL [Suspect]
     Indication: MUSCLE SPASTICITY
     Dosage: 424.82 MCG/DAY
     Route: 037
     Dates: start: 2007
  2. BACLOFEN [Suspect]
  3. TIZANIDINE [Suspect]

REACTIONS (2)
  - Paralysis [None]
  - Muscular weakness [None]
